FAERS Safety Report 19847273 (Version 1)
Quarter: 2021Q3

REPORT INFORMATION
  Report Type: Spontaneous
  Country: US (occurrence: US)
  Receive Date: 20210917
  Receipt Date: 20210917
  Transmission Date: 20211014
  Serious: No
  Sender: FDA-Public Use
  Company Number: US-TEVA-2021-US-1945131

PATIENT
  Age: 47 Year
  Sex: Female

DRUGS (2)
  1. GIANVI [Suspect]
     Active Substance: DROSPIRENONE\ETHINYL ESTRADIOL
     Indication: POLYCYSTIC OVARIES
     Route: 065
     Dates: start: 2009, end: 2021
  2. VESTURA [Suspect]
     Active Substance: DROSPIRENONE\ETHINYL ESTRADIOL
     Indication: POLYCYSTIC OVARIES
     Route: 065
     Dates: start: 2021

REACTIONS (6)
  - Product use in unapproved indication [Unknown]
  - Abdominal distension [Unknown]
  - Acne [Unknown]
  - Anxiety [Unknown]
  - Urine flow decreased [Unknown]
  - Fluid retention [Unknown]

NARRATIVE: CASE EVENT DATE: 2009
